FAERS Safety Report 18080810 (Version 1)
Quarter: 2020Q3

REPORT INFORMATION
  Report Type: Spontaneous
  Country: US (occurrence: US)
  Receive Date: 20200728
  Receipt Date: 20200728
  Transmission Date: 20201103
  Serious: Yes (Other)
  Sender: FDA-Public Use
  Company Number: US-NABRIVA THERAPEUTICS IRELAND DAC-US-2020NAB000012

PATIENT
  Sex: Female

DRUGS (1)
  1. XENLETA [Suspect]
     Active Substance: LEFAMULIN ACETATE
     Indication: PRODUCT USED FOR UNKNOWN INDICATION
     Dosage: 20 TABS
     Route: 065

REACTIONS (1)
  - Pneumonia [Unknown]
